FAERS Safety Report 4307066-8 (Version None)
Quarter: 2004Q1

REPORT INFORMATION
  Report Type: 
  Country: None (occurrence: None)
  Receive Date: 20040225
  Receipt Date: 20040206
  Transmission Date: 20041129
  Serious: Yes (Other)
  Sender: FDA-Public Use
  Company Number: FR_040203595

PATIENT
  Sex: Female

DRUGS (2)
  1. GEMZAR [Suspect]
     Indication: BREAST CANCER METASTATIC
  2. TAXOL [Suspect]
     Indication: BREAST CANCER METASTATIC

REACTIONS (2)
  - ANAEMIA [None]
  - MENINGITIS BACTERIAL [None]
